FAERS Safety Report 6970299-6 (Version None)
Quarter: 2010Q3

REPORT INFORMATION
  Report Type: 
  Country: None (occurrence: None)
  Receive Date: 20100908
  Receipt Date: 20100831
  Transmission Date: 20110219
  Serious: Yes (Other)
  Sender: FDA-Public Use
  Company Number: US-BAYER-201017274NA

PATIENT
  Age: 54 Year
  Sex: Male
  Weight: 61 kg

DRUGS (19)
  1. MAGNEVIST [Suspect]
     Indication: NUCLEAR MAGNETIC RESONANCE IMAGING
     Dates: start: 20060714, end: 20060714
  2. MAGNEVIST [Suspect]
  3. OMNISCAN [Suspect]
     Indication: NUCLEAR MAGNETIC RESONANCE IMAGING
     Dates: start: 20060617, end: 20060617
  4. PROCARDIA XL [Concomitant]
     Dosage: 90 BID
  5. EPO [Concomitant]
     Dosage: PER PROTOCOL
  6. HOLDIRON [Concomitant]
     Dosage: PER PROTOCOL
  7. HEPARIN [Concomitant]
     Dosage: 1000/500
  8. ASPIRIN [Concomitant]
     Dosage: TOTAL DAILY DOSE: 81 MG
     Route: 048
  9. KALETRA [Concomitant]
     Dosage: 2 TABLETS EVERY 12 HOURS
  10. VIREASE [Concomitant]
  11. STAVUDINE [Concomitant]
     Dosage: TOTAL DAILY DOSE: 20 MG
     Route: 048
  12. TENOFOVIR [Concomitant]
     Dosage: 300 MG Q 7 DAYS
  13. VITAMIN B COMPLEX WITH VITAMIN C [Concomitant]
     Dosage: TOTAL DAILY DOSE: 1 DF
     Route: 048
  14. PREDNISONE [Concomitant]
     Dosage: TOTAL DAILY DOSE: 20 MG
     Dates: start: 20060803
  15. ALLOPURINOL [Concomitant]
     Dosage: TOTAL DAILY DOSE: 100 MG
     Route: 048
  16. NEPHROVITE [Concomitant]
     Dosage: WITH MEALS
  17. PHOSLO [Concomitant]
  18. CAL RITE [Concomitant]
  19. COLCHICINE [Concomitant]

REACTIONS (5)
  - ABASIA [None]
  - ARTHRALGIA [None]
  - JOINT SWELLING [None]
  - NEPHROGENIC SYSTEMIC FIBROSIS [None]
  - PAIN IN EXTREMITY [None]
